FAERS Safety Report 15258306 (Version 1)
Quarter: 2018Q3

REPORT INFORMATION
  Report Type: Report from Study
  Country: NL (occurrence: NL)
  Receive Date: 20180809
  Receipt Date: 20180809
  Transmission Date: 20181010
  Serious: Yes (Hospitalization)
  Sender: FDA-Public Use
  Company Number: NL-SUN PHARMACEUTICAL INDUSTRIES LTD-2018RR-180849

PATIENT
  Age: 68 Year
  Sex: Male
  Weight: 66 kg

DRUGS (3)
  1. ODOMZO [Suspect]
     Active Substance: SONIDEGIB
     Indication: PANCREATIC CARCINOMA
     Dosage: 200 MG, QD
     Route: 048
     Dates: start: 20180712
  2. ABRAXANE [Suspect]
     Active Substance: PACLITAXEL
     Indication: PANCREATIC CARCINOMA
     Dosage: 62.5 MG/M2, 4W
     Route: 042
     Dates: start: 20180712
  3. GEMCITABINE [Suspect]
     Active Substance: GEMCITABINE\GEMCITABINE HYDROCHLORIDE
     Indication: PANCREATIC CARCINOMA
     Dosage: 500 MG/M2, 4W
     Route: 042
     Dates: start: 20180712

REACTIONS (1)
  - Catheter site infection [Recovered/Resolved]

NARRATIVE: CASE EVENT DATE: 20180721
